FAERS Safety Report 9245395 (Version 1)
Quarter: 2013Q1

REPORT INFORMATION
  Report Type: Spontaneous
  Country: US (occurrence: None)
  Receive Date: 20121130
  Receipt Date: 20121130
  Transmission Date: 20140127
  Serious: No
  Sender: FDA-Public Use
  Company Number: 1204USA00676

PATIENT
  Age: 60 Year
  Sex: Female

DRUGS (1)
  1. FOSAMAX [Suspect]
     Dosage: 70MG, QD, ORAL?DURATION 14 DAYS
     Route: 048

REACTIONS (3)
  - Overdose [None]
  - No adverse event [None]
  - Incorrect drug administration duration [None]
